FAERS Safety Report 8052527-1 (Version None)
Quarter: 2012Q1

REPORT INFORMATION
  Report Type: 
  Country: None (occurrence: None)
  Receive Date: 20120118
  Receipt Date: 20120113
  Transmission Date: 20120608
  Serious: Yes (Death, Other)
  Sender: FDA-Public Use
  Company Number: ES-SANOFI-AVENTIS-2011SA083440

PATIENT
  Age: 71 Year
  Sex: Male
  Weight: 51 kg

DRUGS (2)
  1. DOCETAXEL [Suspect]
     Route: 042
     Dates: start: 20111128, end: 20111128
  2. CISPLATIN [Suspect]
     Route: 042
     Dates: start: 20111128, end: 20111128

REACTIONS (2)
  - RENAL FAILURE [None]
  - NEUTROPENIA [None]
